FAERS Safety Report 6970629-5 (Version None)
Quarter: 2010Q3

REPORT INFORMATION
  Report Type: 
  Country: None (occurrence: None)
  Receive Date: 20100908
  Receipt Date: 20100903
  Transmission Date: 20110219
  Serious: Yes (Death)
  Sender: FDA-Public Use
  Company Number: PHHY2010US56394

PATIENT
  Sex: Male

DRUGS (2)
  1. GLEEVEC [Suspect]
     Indication: CHRONIC MYELOID LEUKAEMIA
     Dosage: 400 MG, QD
     Route: 048
     Dates: start: 20070723
  2. GLEEVEC [Suspect]
     Indication: ACUTE MYELOID LEUKAEMIA

REACTIONS (2)
  - LUNG NEOPLASM MALIGNANT [None]
  - MALIGNANT NEOPLASM PROGRESSION [None]
